FAERS Safety Report 5366494-2 (Version None)
Quarter: 2007Q2

REPORT INFORMATION
  Report Type: 
  Country: None (occurrence: None)
  Receive Date: 20070622
  Receipt Date: 20070612
  Transmission Date: 20071010
  Serious: Yes (Congenital Anomaly, Other)
  Sender: FDA-Public Use
  Company Number: US-JNJFOC-20070505602

PATIENT
  Sex: Male

DRUGS (10)
  1. TOPAMAX [Suspect]
     Dosage: 300 MG AM, 400 MG PM; GESTATION 30-36 WEEKS
  2. TOPAMAX [Suspect]
     Dosage: GESTATION 28-30 WEEKS
  3. TOPAMAX [Suspect]
     Dosage: GESTATION 17-28 WEEKS
  4. TOPAMAX [Suspect]
     Dosage: GESTATION 14-16 WEEKS
  5. TOPAMAX [Suspect]
     Dosage: GESTATION 8-13 WEEKS
  6. TOPAMAX [Suspect]
     Indication: DRUG EXPOSURE DURING PREGNANCY
  7. FOLIC ACID [Concomitant]
     Indication: DRUG EXPOSURE DURING PREGNANCY
     Dosage: GESTATION 8-36 WEEKS
  8. VITAMIN AND MINERAL PRENATAL SUPPLEMENT W/ FOLIC ACID CAP [Concomitant]
     Indication: DRUG EXPOSURE DURING PREGNANCY
  9. ACETAMINOPHEN [Concomitant]
     Indication: DRUG EXPOSURE DURING PREGNANCY
  10. ACETAMINOPHEN AND HYDROCODONE BITARTRATE [Concomitant]
     Indication: DRUG EXPOSURE DURING PREGNANCY
     Dosage: 5/325 MG

REACTIONS (4)
  - COARCTATION OF THE AORTA [None]
  - HYPOGLYCAEMIA [None]
  - PREMATURE BABY [None]
  - VENTRICULAR SEPTAL DEFECT [None]
